FAERS Safety Report 8837866 (Version 1)
Quarter: 2012Q4

REPORT INFORMATION
  Report Type: 
  Country: CA (occurrence: CA)
  Receive Date: 20121012
  Receipt Date: 20121012
  Transmission Date: 20130627
  Serious: Yes (Hospitalization, Other)
  Sender: FDA-Public Use
  Company Number: CA-NAPPMUNDI-CAN-2012-0003392

PATIENT
  Age: 24 Year
  Sex: Female

DRUGS (5)
  1. DILAUDID [Suspect]
     Indication: PRODUCT USED FOR UNKNOWN INDICATION
     Dosage: 120 mg, UNK
     Route: 042
  2. HYDROMORPH CONTIN [Suspect]
     Indication: PRODUCT USED FOR UNKNOWN INDICATION
     Dosage: 120 mg, UNK
     Route: 042
  3. ALCOHOL [Suspect]
     Indication: PRODUCT USED FOR UNKNOWN INDICATION
     Dosage: UNK
  4. NICOTINE [Suspect]
     Indication: PRODUCT USED FOR UNKNOWN INDICATION
     Dosage: UNK
  5. VALIUM                             /00017001/ [Suspect]
     Indication: PRODUCT USED FOR UNKNOWN INDICATION

REACTIONS (11)
  - Drug dependence [Unknown]
  - Substance abuse [Unknown]
  - Suicidal behaviour [Unknown]
  - Drug withdrawal syndrome [Unknown]
  - Disinhibition [Unknown]
  - Judgement impaired [Unknown]
  - Social avoidant behaviour [Unknown]
  - Flushing [Unknown]
  - Euphoric mood [Unknown]
  - Pruritus [Unknown]
  - Paraesthesia [Unknown]
